FAERS Safety Report 19562443 (Version 2)
Quarter: 2021Q4

REPORT INFORMATION
  Report Type: Report from Study
  Country: NL (occurrence: NL)
  Receive Date: 20210716
  Receipt Date: 20211203
  Transmission Date: 20220303
  Serious: Yes (Other)
  Sender: FDA-Public Use
  Company Number: NL-NOVARTISPH-NVSC2021NL151918

PATIENT
  Age: 72 Year
  Sex: Female

DRUGS (3)
  1. RYDAPT [Suspect]
     Active Substance: MIDOSTAURIN
     Indication: Product used for unknown indication
     Dosage: 100 MG
     Route: 065
     Dates: start: 20210619, end: 20210628
  2. DAUNORUBICIN [Suspect]
     Active Substance: DAUNORUBICIN
     Indication: Product used for unknown indication
     Dosage: 122.5 MG
     Route: 065
     Dates: start: 20210612
  3. CYTARABINE [Suspect]
     Active Substance: CYTARABINE
     Indication: Product used for unknown indication
     Dosage: 420 MG
     Route: 065
     Dates: start: 20210612

REACTIONS (5)
  - Dyspnoea [Unknown]
  - Hypoxia [Not Recovered/Not Resolved]
  - Ejection fraction decreased [Not Recovered/Not Resolved]
  - Cardiac failure congestive [Unknown]
  - Lung infiltration [Unknown]

NARRATIVE: CASE EVENT DATE: 20210628
